FAERS Safety Report 24076256 (Version 1)
Quarter: 2024Q3

REPORT INFORMATION
  Report Type: Spontaneous
  Country: US (occurrence: US)
  Receive Date: 20240711
  Receipt Date: 20240711
  Transmission Date: 20241016
  Serious: No
  Sender: BLUEPRINT MEDICINES
  Company Number: US-Blueprint Medicines Corporation-4110

PATIENT
  Sex: Male

DRUGS (1)
  1. AYVAKIT [Suspect]
     Active Substance: AVAPRITINIB
     Indication: Systemic mastocytosis
     Route: 065
     Dates: start: 20230310

REACTIONS (6)
  - Weight increased [Unknown]
  - Fatigue [Unknown]
  - Photosensitivity reaction [Unknown]
  - Abdominal distension [Unknown]
  - Decreased appetite [Unknown]
  - White blood cell count decreased [Unknown]
